FAERS Safety Report 20329338 (Version 1)
Quarter: 2022Q1

REPORT INFORMATION
  Report Type: Spontaneous
  Country: US (occurrence: None)
  Receive Date: 20220112
  Receipt Date: 20220112
  Transmission Date: 20220423
  Serious: Yes (Hospitalization)
  Sender: FDA-Public Use
  Company Number: None

PATIENT
  Age: 68 Year
  Sex: Male
  Weight: 103.5 kg

DRUGS (14)
  1. PRIVIGEN [Suspect]
     Active Substance: HUMAN IMMUNOGLOBULIN G
     Indication: Myasthenia gravis
     Dosage: OTHER FREQUENCY : ONCE EVERY 4 WEEKS;?
     Route: 041
     Dates: start: 20190530
  2. PRIVIGEN [Suspect]
     Active Substance: HUMAN IMMUNOGLOBULIN G
     Indication: Myasthenia gravis
     Dosage: OTHER FREQUENCY : ONCE EVERY 4 WEEKS;?
     Route: 041
     Dates: start: 20190530
  3. ALBUTEROL [Concomitant]
     Active Substance: ALBUTEROL
     Dates: start: 20190530
  4. ALBUTEROL [Concomitant]
     Active Substance: ALBUTEROL
     Dates: start: 20190530
  5. AZATHIOPRINE [Concomitant]
     Active Substance: AZATHIOPRINE
     Dates: start: 20190530
  6. BUMETANIDE [Concomitant]
     Active Substance: BUMETANIDE
     Dates: start: 20190530
  7. BUPROPION [Concomitant]
     Active Substance: BUPROPION
     Dates: start: 20190530
  8. CITALOPRAM [Concomitant]
     Active Substance: CITALOPRAM HYDROBROMIDE
     Dates: start: 20190530
  9. FAMOTIDINE [Concomitant]
     Active Substance: FAMOTIDINE
     Dates: start: 20190530
  10. LISINOPRIL [Concomitant]
     Active Substance: LISINOPRIL
     Dates: start: 20190530
  11. OXYGEN [Concomitant]
     Active Substance: OXYGEN
     Dates: start: 20190530
  12. PREDNISONE [Concomitant]
     Active Substance: PREDNISONE
     Dates: start: 20190530
  13. PYRIDOSTIGMINE [Concomitant]
     Active Substance: PYRIDOSTIGMINE
     Dates: start: 20190530
  14. SULFAMETHOXAZOLE\TRIMETHOPRIM [Concomitant]
     Active Substance: SULFAMETHOXAZOLE\TRIMETHOPRIM
     Dates: start: 20190530

REACTIONS (4)
  - Pruritus [None]
  - Infusion related reaction [None]
  - Blister [None]
  - Throat irritation [None]

NARRATIVE: CASE EVENT DATE: 20220106
